FAERS Safety Report 4590000-3 (Version None)
Quarter: 2005Q1

REPORT INFORMATION
  Report Type: 
  Country: None (occurrence: None)
  Receive Date: 20050218
  Receipt Date: 20050218
  Transmission Date: 20050727
  Serious: No
  Sender: FDA-Public Use
  Company Number: None

PATIENT
  Sex: Female
  Weight: 61.2356 kg

DRUGS (3)
  1. PROZAC [Suspect]
     Indication: DEPRESSION
     Dosage: 10 MG  3 CAPS BID ORAL
     Route: 048
     Dates: start: 20050119, end: 20050217
  2. STRATTERA [Suspect]
     Indication: ATTENTION DEFICIT/HYPERACTIVITY DISORDER
     Dosage: 18 MG  1 BID ORAL
     Route: 048
     Dates: start: 20050125, end: 20050210
  3. NEXIUM [Concomitant]

REACTIONS (2)
  - DIZZINESS POSTURAL [None]
  - PALPITATIONS [None]
